FAERS Safety Report 5268829-8 (Version None)
Quarter: 2007Q1

REPORT INFORMATION
  Report Type: 
  Country: None (occurrence: None)
  Receive Date: 20070319
  Receipt Date: 20070314
  Transmission Date: 20070707
  Serious: Yes (Hospitalization)
  Sender: FDA-Public Use
  Company Number: FRWYE020914MAR07

PATIENT
  Sex: Female
  Weight: 18.5 kg

DRUGS (3)
  1. ADVIL [Suspect]
     Indication: INFLUENZA
     Dosage: 30 MG/KG TOTAL DAILY
     Route: 048
     Dates: start: 20070214
  2. TOPLEXIL [Concomitant]
     Dosage: UNKNOWN
     Route: 048
     Dates: start: 20070214
  3. ACETAMINOPHEN [Concomitant]
     Dosage: 66 MG/KG TOTAL DAILY
     Route: 048
     Dates: start: 20070214

REACTIONS (2)
  - PNEUMOCOCCAL BACTERAEMIA [None]
  - PNEUMONIA PNEUMOCOCCAL [None]
